FAERS Safety Report 7079934-8 (Version None)
Quarter: 2010Q4

REPORT INFORMATION
  Report Type: 
  Country: None (occurrence: None)
  Receive Date: 20101102
  Receipt Date: 20101026
  Transmission Date: 20110411
  Serious: Yes (Other)
  Sender: FDA-Public Use
  Company Number: BR-PFIZER INC-2010136448

PATIENT
  Age: 25 Year
  Sex: Female
  Weight: 53 kg

DRUGS (8)
  1. CHAMPIX [Suspect]
     Indication: TOBACCO ABUSE
     Dosage: UNK
     Route: 048
     Dates: start: 20100924, end: 20101001
  2. CHAMPIX [Suspect]
     Dosage: 0.5 MG, 2X/DAY
     Route: 048
     Dates: start: 20100101, end: 20101001
  3. FLUOXETINE [Concomitant]
     Indication: DEPRESSION
     Dosage: UNK
  4. FLUOXETINE [Concomitant]
     Indication: INSOMNIA
  5. NOCTAL [Concomitant]
     Indication: DEPRESSION
     Dosage: UNK
  6. NOCTAL [Concomitant]
     Indication: INSOMNIA
  7. TRAZODONE HYDROCHLORIDE [Concomitant]
     Indication: DEPRESSION
     Dosage: UNK
  8. TRAZODONE HYDROCHLORIDE [Concomitant]
     Indication: INSOMNIA

REACTIONS (3)
  - AGGRESSION [None]
  - DEPRESSION [None]
  - NERVOUSNESS [None]
